FAERS Safety Report 13288448 (Version 1)
Quarter: 2017Q1

REPORT INFORMATION
  Report Type: Spontaneous
  Country: US (occurrence: US)
  Receive Date: 20170302
  Receipt Date: 20170302
  Transmission Date: 20170428
  Serious: Yes (Other)
  Sender: FDA-Public Use
  Company Number: US-B.I. PHARMACEUTICALS,INC./RIDGEFIELD-2017-BI-010719

PATIENT
  Sex: Female

DRUGS (1)
  1. SPIRIVA [Suspect]
     Active Substance: TIOTROPIUM BROMIDE MONOHYDRATE
     Indication: CHRONIC OBSTRUCTIVE PULMONARY DISEASE
     Dosage: ONE CAPSULE DAILY;  FORM STRENGTH: 18 MCG; FORMULATION: CAPSULE ADMINISTRATION CORRECT? YES ACTION(S
     Route: 055
     Dates: start: 2004

REACTIONS (3)
  - Haemoptysis [Not Recovered/Not Resolved]
  - Cervix carcinoma [Unknown]
  - Lung neoplasm malignant [Not Recovered/Not Resolved]

NARRATIVE: CASE EVENT DATE: 2016
